FAERS Safety Report 8064157-6 (Version None)
Quarter: 2012Q1

REPORT INFORMATION
  Report Type: 
  Country: None (occurrence: None)
  Receive Date: 20120123
  Receipt Date: 20120116
  Transmission Date: 20120608
  Serious: Yes (Hospitalization)
  Sender: FDA-Public Use
  Company Number: JP-GLAXOSMITHKLINE-B0776508A

PATIENT
  Age: 83 Year
  Sex: Male
  Weight: 54 kg

DRUGS (3)
  1. LEVOFLOXACIN [Concomitant]
     Route: 065
     Dates: start: 20120114
  2. VALTREX [Suspect]
     Dosage: 1000MG PER DAY
     Route: 048
     Dates: start: 20120114
  3. MEIACT [Concomitant]
     Route: 048
     Dates: start: 20120113

REACTIONS (1)
  - NERVOUS SYSTEM DISORDER [None]
